FAERS Safety Report 21505544 (Version 1)
Quarter: 2022Q4

REPORT INFORMATION
  Report Type: Spontaneous
  Country: US (occurrence: US)
  Receive Date: 20221026
  Receipt Date: 20221026
  Transmission Date: 20230112
  Serious: Yes (Life-Threatening, Hospitalization)
  Sender: FDA-Public Use
  Company Number: US-STRIDES ARCOLAB LIMITED-2022SP013915

PATIENT
  Age: 27 Year
  Sex: Female

DRUGS (29)
  1. HALOPERIDOL [Suspect]
     Active Substance: HALOPERIDOL
     Indication: Intensive care unit delirium
     Dosage: 6 MILLIGRAM PER DAY; AS NEEDED
     Route: 065
  2. ALPRAZOLAM [Suspect]
     Active Substance: ALPRAZOLAM
     Indication: Intensive care unit delirium
     Dosage: UNK
     Route: 065
  3. ALPRAZOLAM [Suspect]
     Active Substance: ALPRAZOLAM
     Dosage: 1.25 MILLIGRAM, TID
     Route: 065
  4. ALPRAZOLAM [Suspect]
     Active Substance: ALPRAZOLAM
     Dosage: UNK; PRESCRIBED ALONG WITH DISCHARGE MEDICATION
     Route: 065
  5. GABAPENTIN [Suspect]
     Active Substance: GABAPENTIN
     Indication: Intensive care unit delirium
     Dosage: UNK
     Route: 065
  6. TRAZODONE [Suspect]
     Active Substance: TRAZODONE HYDROCHLORIDE
     Indication: Intensive care unit delirium
     Dosage: UNK
     Route: 065
  7. OXYCODONE [Suspect]
     Active Substance: OXYCODONE
     Indication: Intensive care unit delirium
     Dosage: 20 MILLIGRAM, EVERY 4 HRS; AS NEEDED
     Route: 065
  8. DIAZEPAM [Suspect]
     Active Substance: DIAZEPAM
     Indication: Intensive care unit delirium
     Dosage: 5 MILLIGRAM, TID
     Route: 065
  9. PROPOFOL [Suspect]
     Active Substance: PROPOFOL
     Indication: Intensive care unit delirium
     Dosage: CONTINUOUS INFUSION
     Route: 065
  10. PROPOFOL [Suspect]
     Active Substance: PROPOFOL
     Dosage: MAINTAINED AT 50MCG/KG/MIN
     Route: 065
  11. PROPOFOL [Suspect]
     Active Substance: PROPOFOL
     Dosage: UNK; REDUCED TO 20 MCG/KG/MIN OVER 2 HOURS
     Route: 065
  12. FENTANYL [Suspect]
     Active Substance: FENTANYL
     Indication: Intensive care unit delirium
     Dosage: UNK CONTINUOUS INFUSION
     Route: 065
  13. FENTANYL [Suspect]
     Active Substance: FENTANYL
     Dosage: 300 MCG/H; INFUSION
     Route: 065
  14. FENTANYL [Suspect]
     Active Substance: FENTANYL
     Dosage: 200 MCG/H; TRANSDERMAL PATCH
     Route: 062
  15. FENTANYL [Suspect]
     Active Substance: FENTANYL
     Dosage: 300 MCG/H; TRANSDERMAL PATCH
     Route: 062
  16. FENTANYL [Suspect]
     Active Substance: FENTANYL
     Dosage: UNK; FENTANYL PATCH IN DISCHARGE MEDICATION
     Route: 065
  17. QUETIAPINE [Suspect]
     Active Substance: QUETIAPINE
     Indication: Intensive care unit delirium
     Dosage: 50 MILLIGRAM, BID
     Route: 065
  18. QUETIAPINE [Suspect]
     Active Substance: QUETIAPINE
     Dosage: 200 MILLIGRAM, BID
     Route: 065
  19. QUETIAPINE [Suspect]
     Active Substance: QUETIAPINE
     Dosage: UNK; DISCHARGE MEDICATION
     Route: 065
  20. LORAZEPAM [Suspect]
     Active Substance: LORAZEPAM
     Indication: Intensive care unit delirium
     Dosage: 8 MILLIGRAM PER DAY AS NEEDED
     Route: 065
  21. LORAZEPAM [Suspect]
     Active Substance: LORAZEPAM
     Dosage: UNK, 1-10 MG/HR CONTINUOUS INFUSION
     Route: 065
  22. METHADONE [Suspect]
     Active Substance: METHADONE HYDROCHLORIDE
     Indication: Intensive care unit delirium
     Dosage: 10 MILLIGRAM, TID
  23. CLONAZEPAM [Suspect]
     Active Substance: CLONAZEPAM
     Indication: Intensive care unit delirium
     Dosage: UNK
     Route: 065
  24. SERTRALINE [Suspect]
     Active Substance: SERTRALINE HYDROCHLORIDE
     Indication: Intensive care unit delirium
     Dosage: UNK
     Route: 065
  25. MIDAZOLAM [Suspect]
     Active Substance: MIDAZOLAM
     Indication: Intensive care unit delirium
     Dosage: 1-10 MG/HR CONTINUOUS INFUSION
     Route: 065
  26. DEXMEDETOMIDINE [Suspect]
     Active Substance: DEXMEDETOMIDINE
     Indication: Intensive care unit delirium
     Dosage: 0.1-0.7 MCG/KG/HR CONTINUOUS INFUSION
     Route: 065
  27. KETAMINE [Suspect]
     Active Substance: KETAMINE
     Indication: Intensive care unit delirium
     Dosage: 1-10 MCG/KG/MIN CONTINUOUS INFUSION
     Route: 065
  28. HYDROMORPHONE [Suspect]
     Active Substance: HYDROMORPHONE
     Indication: Intensive care unit delirium
     Dosage: 2 MILLIGRAM, EVERY 4 HRS AS NEEDED
     Route: 042
  29. COCAINE [COCAINE HYDROCHLORIDE] [Concomitant]
     Indication: Substance abuse
     Dosage: UNK
     Route: 065

REACTIONS (3)
  - Posterior reversible encephalopathy syndrome [Recovered/Resolved]
  - Treatment failure [Unknown]
  - Off label use [Unknown]
